FAERS Safety Report 18950422 (Version 1)
Quarter: 2021Q1

REPORT INFORMATION
  Report Type: Spontaneous
  Country: US (occurrence: US)
  Receive Date: 20210228
  Receipt Date: 20210228
  Transmission Date: 20210420
  Serious: No
  Sender: FDA-Public Use
  Company Number: US-ROCHE-2737340

PATIENT
  Age: 36 Year
  Sex: Female

DRUGS (6)
  1. XOLAIR [Suspect]
     Active Substance: OMALIZUMAB
     Indication: IDIOPATHIC URTICARIA
     Route: 058
  2. SINGULAIR [Concomitant]
     Active Substance: MONTELUKAST SODIUM
     Indication: IDIOPATHIC URTICARIA
  3. ZYRTEC (UNITED STATES) [Concomitant]
     Indication: IDIOPATHIC URTICARIA
     Dosage: 4 ZYRTEC
  4. ALLEGRA [Concomitant]
     Active Substance: FEXOFENADINE HYDROCHLORIDE
     Indication: IDIOPATHIC URTICARIA
  5. FAMOTIDINE. [Concomitant]
     Active Substance: FAMOTIDINE
     Indication: IDIOPATHIC URTICARIA
     Dosage: 2
  6. ADVIL [Concomitant]
     Active Substance: IBUPROFEN
     Indication: HEADACHE

REACTIONS (5)
  - Off label use [Unknown]
  - Intentional product use issue [Unknown]
  - Lip swelling [Recovered/Resolved]
  - Urticaria [Unknown]
  - Headache [Recovered/Resolved]

NARRATIVE: CASE EVENT DATE: 20201217
